FAERS Safety Report 5567025-4 (Version None)
Quarter: 2007Q4

REPORT INFORMATION
  Report Type: 
  Country: None (occurrence: None)
  Receive Date: 20071218
  Receipt Date: 20071218
  Transmission Date: 20080405
  Serious: No
  Sender: FDA-Public Use
  Company Number: None

PATIENT
  Age: 32 Year
  Sex: Female
  Weight: 157.8518 kg

DRUGS (10)
  1. CLOZAPINE [Suspect]
     Dosage: 500MG PO
     Route: 048
  2. DEPAKOTE [Concomitant]
  3. ZOLOFT [Concomitant]
  4. M.V.I. [Concomitant]
  5. LORATADINE [Concomitant]
  6. ARIPIPRAZOLE [Concomitant]
  7. PROPRANOLOL [Concomitant]
  8. BISACODYL [Concomitant]
  9. TOLTERODINE TARTRATE [Concomitant]
  10. OMEPRAZOLE [Concomitant]

REACTIONS (2)
  - ORTHOSTATIC HYPOTENSION [None]
  - THERAPY REGIMEN CHANGED [None]
